FAERS Safety Report 18588823 (Version 14)
Quarter: 2021Q4

REPORT INFORMATION
  Report Type: Report from Study
  Country: CO (occurrence: CO)
  Receive Date: 20201207
  Receipt Date: 20211224
  Transmission Date: 20220303
  Serious: Yes (Other)
  Sender: FDA-Public Use
  Company Number: CO-ABBVIE-20K-036-3617950-00

PATIENT
  Sex: Female
  Weight: 42 kg

DRUGS (5)
  1. HUMIRA [Suspect]
     Active Substance: ADALIMUMAB
     Indication: Crohn^s disease
     Route: 058
     Dates: start: 20200521, end: 20201130
  2. DESLORATADINE [Concomitant]
     Active Substance: DESLORATADINE
     Indication: Product used for unknown indication
     Route: 048
     Dates: start: 20201024
  3. MESALAMINE [Concomitant]
     Active Substance: MESALAMINE
     Indication: Colitis ulcerative
     Route: 048
     Dates: start: 2016, end: 2016
  4. ALSUCRAL [Concomitant]
     Indication: Colitis ulcerative
     Route: 048
     Dates: start: 2016, end: 2016
  5. AZATHIOPRINE [Concomitant]
     Active Substance: AZATHIOPRINE
     Indication: Product used for unknown indication
     Route: 048
     Dates: start: 2016, end: 2018

REACTIONS (57)
  - Benign pancreatic neoplasm [Not Recovered/Not Resolved]
  - Dry eye [Recovering/Resolving]
  - Occult blood positive [Not Recovered/Not Resolved]
  - DiGeorge^s syndrome [Recovering/Resolving]
  - Spleen disorder [Not Recovered/Not Resolved]
  - Pancreatic disorder [Not Recovered/Not Resolved]
  - Synovial cyst [Not Recovered/Not Resolved]
  - Hepatic neoplasm [Not Recovered/Not Resolved]
  - Pancreatic neoplasm [Unknown]
  - Sjogren^s syndrome [Unknown]
  - Fatigue [Recovering/Resolving]
  - Reflux gastritis [Recovering/Resolving]
  - Intervertebral disc disorder [Not Recovered/Not Resolved]
  - Bacterial allergy [Not Recovered/Not Resolved]
  - Mite allergy [Not Recovered/Not Resolved]
  - Pruritus allergic [Unknown]
  - Food allergy [Recovering/Resolving]
  - Flatulence [Recovering/Resolving]
  - Vitamin A deficiency [Not Recovered/Not Resolved]
  - Vitamin D deficiency [Not Recovered/Not Resolved]
  - Gastritis [Not Recovered/Not Resolved]
  - Lymphadenopathy [Not Recovered/Not Resolved]
  - Eye inflammation [Recovering/Resolving]
  - Constipation [Recovering/Resolving]
  - Abdominal distension [Unknown]
  - Burning sensation [Not Recovered/Not Resolved]
  - Erythema [Recovering/Resolving]
  - Dermatitis allergic [Recovering/Resolving]
  - Urticaria [Recovering/Resolving]
  - Drug eruption [Recovered/Resolved]
  - Dyspnoea [Recovering/Resolving]
  - Spinal pain [Recovering/Resolving]
  - Breast pain [Recovering/Resolving]
  - Eye pain [Not Recovered/Not Resolved]
  - Pain in extremity [Unknown]
  - Rash [Not Recovered/Not Resolved]
  - Arthralgia [Recovering/Resolving]
  - Abdominal discomfort [Not Recovered/Not Resolved]
  - Vomiting [Recovering/Resolving]
  - Drug ineffective [Recovering/Resolving]
  - Back pain [Recovering/Resolving]
  - Influenza [Not Recovered/Not Resolved]
  - Incision site swelling [Not Recovered/Not Resolved]
  - Incision site pain [Not Recovered/Not Resolved]
  - Nausea [Not Recovered/Not Resolved]
  - Vitamin B12 deficiency [Not Recovered/Not Resolved]
  - Lactose intolerance [Recovering/Resolving]
  - Headache [Recovering/Resolving]
  - Food intolerance [Recovering/Resolving]
  - Gluten sensitivity [Recovering/Resolving]
  - Glucose tolerance impaired [Recovering/Resolving]
  - Gastrointestinal inflammation [Recovering/Resolving]
  - Dairy intolerance [Recovering/Resolving]
  - Arthralgia [Not Recovered/Not Resolved]
  - Rash erythematous [Unknown]
  - Back pain [Unknown]
  - Joint neoplasm [Unknown]

NARRATIVE: CASE EVENT DATE: 20200101
